FAERS Safety Report 17048802 (Version 3)
Quarter: 2019Q4

REPORT INFORMATION
  Report Type: Spontaneous
  Country: US (occurrence: US)
  Receive Date: 20191119
  Receipt Date: 20191219
  Transmission Date: 20200122
  Serious: Yes (Other)
  Sender: FDA-Public Use
  Company Number: US-STRONGBRIDGE BIOPHARMA-2019-STR-000304

PATIENT
  Age: 45 Year
  Sex: Male

DRUGS (2)
  1. KEVEYIS [Suspect]
     Active Substance: DICHLORPHENAMIDE
     Indication: FAMILIAL PERIODIC PARALYSIS
     Dosage: 50 MG, BID
     Route: 048
     Dates: start: 20191029
  2. KEVEYIS [Suspect]
     Active Substance: DICHLORPHENAMIDE
     Dosage: 50 MG IN THE MORNING AND 100 MG IN THE EVENING
     Route: 048
     Dates: end: 20191119

REACTIONS (4)
  - Disease recurrence [Unknown]
  - Crohn^s disease [Unknown]
  - Vision blurred [Unknown]
  - Muscular weakness [Unknown]

NARRATIVE: CASE EVENT DATE: 20191109
